FAERS Safety Report 7087162-5 (Version None)
Quarter: 2010Q4

REPORT INFORMATION
  Report Type: 
  Country: None (occurrence: None)
  Receive Date: 20101106
  Receipt Date: 20101101
  Transmission Date: 20110411
  Serious: No
  Sender: FDA-Public Use
  Company Number: US-WYE-H18497410

PATIENT
  Sex: Male
  Weight: 72.64 kg

DRUGS (5)
  1. PRISTIQ [Suspect]
     Indication: ANXIETY
     Dosage: SPLIT 50 MG TABLET IN HALF ONCE DAILY
     Route: 048
     Dates: start: 20100901, end: 20101001
  2. PRISTIQ [Suspect]
     Route: 048
     Dates: start: 20101001
  3. LISINOPRIL [Concomitant]
  4. KLONOPIN [Concomitant]
  5. NEURONTIN [Concomitant]

REACTIONS (7)
  - ANXIETY [None]
  - ASTHENIA [None]
  - CONDITION AGGRAVATED [None]
  - NAUSEA [None]
  - SOMNOLENCE [None]
  - STRESS [None]
  - VOMITING [None]
